FAERS Safety Report 5119267-X (Version None)
Quarter: 2006Q4

REPORT INFORMATION
  Report Type: 
  Country: None (occurrence: None)
  Receive Date: 20061003
  Receipt Date: 20060810
  Transmission Date: 20070319
  Serious: Yes (Hospitalization, Other)
  Sender: FDA-Public Use
  Company Number: PHBS2006BR12238

PATIENT
  Age: 51 Year
  Sex: Female
  Weight: 81 kg

DRUGS (5)
  1. DIOVAN [Suspect]
     Indication: HYPERTENSION
     Dosage: 80 MG/DAY
     Route: 048
  2. DIOVAN [Suspect]
     Dosage: 80 MG, BID
     Route: 048
     Dates: start: 20060731, end: 20060803
  3. DIOVAN [Suspect]
     Dosage: 80 MG, TID
     Route: 048
     Dates: start: 20060804
  4. DIOVAN [Suspect]
     Dosage: 80 MG, BID
     Route: 048
  5. METFORMIN HCL [Concomitant]
     Indication: DIABETES MELLITUS

REACTIONS (6)
  - BLOOD PRESSURE INCREASED [None]
  - MALAISE [None]
  - NECK PAIN [None]
  - PAIN [None]
  - PYREXIA [None]
  - URINARY TRACT INFLAMMATION [None]
